FAERS Safety Report 6503918-9 (Version None)
Quarter: 2009Q4

REPORT INFORMATION
  Report Type: 
  Country: None (occurrence: None)
  Receive Date: 20091216
  Receipt Date: 20091216
  Transmission Date: 20100525
  Serious: No
  Sender: FDA-Public Use
  Company Number: None

PATIENT
  Age: 83 Year
  Sex: Female
  Weight: 61 kg

DRUGS (2)
  1. PRILOCAINE/LIDOCAINE 2.5%/2.5% [Suspect]
     Indication: DIALYSIS
     Dosage: 2.5% PRE DIALYSIS TOP
     Route: 061
     Dates: start: 20091201, end: 20091211
  2. PRILOCAINE/LIDOCAINE 2.5%/2.5% [Suspect]
     Indication: LOCAL ANAESTHESIA
     Dosage: 2.5% PRE DIALYSIS TOP
     Route: 061
     Dates: start: 20091201, end: 20091211

REACTIONS (3)
  - BURNING SENSATION [None]
  - ERYTHEMA [None]
  - PRODUCT SUBSTITUTION ISSUE [None]
